FAERS Safety Report 9519823 (Version 2)
Quarter: 2014Q1

REPORT INFORMATION
  Report Type: Spontaneous
  Country: US (occurrence: None)
  Receive Date: 20130305
  Receipt Date: 20140306
  Transmission Date: 20141002
  Serious: Yes (Hospitalization, Other)
  Sender: FDA-Public Use
  Company Number: 163-21880-12111934

PATIENT
  Age: 77 Year
  Sex: Female

DRUGS (4)
  1. REVLIMID [Suspect]
     Indication: MYELOFIBROSIS
     Dosage: 10 MG, 28 IN 28 D, PO
     Route: 048
     Dates: start: 201209, end: 201301
  2. IRON (IRON) [Concomitant]
  3. FISH OIL (FISH OIL) [Concomitant]
  4. MITOMYCIN C (MITOMYCIN) [Concomitant]

REACTIONS (10)
  - Full blood count decreased [None]
  - Onychomadesis [None]
  - Onychoclasis [None]
  - Diarrhoea [None]
  - Abdominal pain lower [None]
  - Weight decreased [None]
  - Sensory disturbance [None]
  - Increased tendency to bruise [None]
  - Anaemia [None]
  - Neuropathy peripheral [None]
